FAERS Safety Report 4554841-0 (Version None)
Quarter: 2005Q1

REPORT INFORMATION
  Report Type: 
  Country: None (occurrence: None)
  Receive Date: 20041228
  Receipt Date: 20041012
  Transmission Date: 20050727
  Serious: No
  Sender: FDA-Public Use
  Company Number: IND-AE-04-SAN-004

PATIENT
  Age: 69 Year
  Sex: Female

DRUGS (1)
  1. SANCTURA [Suspect]
     Indication: HYPERTONIC BLADDER
     Dosage: 20 MG, BID, ORAL
     Route: 048
     Dates: start: 20041004, end: 20041006

REACTIONS (2)
  - DRUG INEFFECTIVE [None]
  - DRY MOUTH [None]
